FAERS Safety Report 21006784 (Version 2)
Quarter: 2022Q3

REPORT INFORMATION
  Report Type: Report from Study
  Country: US (occurrence: US)
  Receive Date: 20220625
  Receipt Date: 20220920
  Transmission Date: 20221027
  Serious: Yes (Other)
  Sender: FDA-Public Use
  Company Number: US-BRISTOL-MYERS SQUIBB COMPANY-2022-052959

PATIENT
  Age: 66 Year
  Sex: Female
  Weight: 102.05 kg

DRUGS (1)
  1. REVLIMID [Suspect]
     Active Substance: LENALIDOMIDE
     Indication: Plasma cell myeloma
     Dosage: A3841B; 31-MAR-2025
     Route: 048
     Dates: start: 20191227

REACTIONS (3)
  - Blood cholesterol increased [Unknown]
  - Gastritis [Unknown]
  - Oesophagitis [Unknown]
